FAERS Safety Report 4266799-2 (Version None)
Quarter: 2004Q1

REPORT INFORMATION
  Report Type: 
  Country: None (occurrence: None)
  Receive Date: 20040108
  Receipt Date: 20031217
  Transmission Date: 20041129
  Serious: Yes (Hospitalization)
  Sender: FDA-Public Use
  Company Number: FR-ROCHE-354386

PATIENT
  Age: 76 Year
  Sex: Male
  Weight: 80 kg

DRUGS (3)
  1. APRANAX [Suspect]
     Indication: DRUG USE FOR UNKNOWN INDICATION
     Route: 048
  2. CIBADREX [Concomitant]
     Route: 048
  3. BISOPROLOL FUMARATE [Concomitant]
     Route: 048

REACTIONS (15)
  - ANAEMIA [None]
  - ANGINA PECTORIS [None]
  - AORTIC STENOSIS [None]
  - ATRIAL FIBRILLATION [None]
  - BLOOD IRON DECREASED [None]
  - CARDIAC MURMUR [None]
  - DYSPNOEA EXERTIONAL [None]
  - GASTRIC ULCER [None]
  - HELICOBACTER INFECTION [None]
  - ISCHAEMIA [None]
  - MALAISE [None]
  - MELAENA [None]
  - NORMOCHROMIC NORMOCYTIC ANAEMIA [None]
  - SYNCOPE [None]
  - TACHYARRHYTHMIA [None]
